FAERS Safety Report 14498814 (Version 4)
Quarter: 2018Q1

REPORT INFORMATION
  Report Type: Spontaneous
  Country: IT (occurrence: IT)
  Receive Date: 20180207
  Receipt Date: 20180327
  Transmission Date: 20180509
  Serious: Yes (Other)
  Sender: FDA-Public Use
  Company Number: PHHY2017IT200246

PATIENT
  Age: 4 Year
  Sex: Female

DRUGS (1)
  1. REVOLADE [Suspect]
     Active Substance: ELTROMBOPAG
     Indication: IMMUNE THROMBOCYTOPENIC PURPURA
     Dosage: 68 MG, QD
     Route: 048
     Dates: start: 20170113, end: 20171203

REACTIONS (5)
  - Hypertransaminasaemia [Recovered/Resolved]
  - Viral infection [Recovered/Resolved]
  - Thrombocytosis [Recovered/Resolved]
  - Hyperbilirubinaemia [Recovered/Resolved]
  - Off label use [Unknown]

NARRATIVE: CASE EVENT DATE: 20171204
